FAERS Safety Report 12696202 (Version 1)
Quarter: 2016Q3

REPORT INFORMATION
  Report Type: Spontaneous
  Country: US (occurrence: US)
  Receive Date: 20160829
  Receipt Date: 20160829
  Transmission Date: 20161109
  Serious: Yes (Hospitalization)
  Sender: FDA-Public Use
  Company Number: US-FRI-1000087089

PATIENT
  Sex: Female

DRUGS (4)
  1. MEMANTINE. [Suspect]
     Active Substance: MEMANTINE
     Indication: AMNESIA
     Dosage: 5 MG
     Route: 048
     Dates: start: 201604, end: 20160725
  2. LOMOTIL [Concomitant]
     Active Substance: ATROPINE SULFATE\DIPHENOXYLATE HYDROCHLORIDE
     Indication: ULCER
     Dosage: DAILY
     Route: 048
  3. BUDESONIDE. [Concomitant]
     Active Substance: BUDESONIDE
     Indication: ULCER
     Dosage: DAILY
     Route: 048
  4. SYNTHROID [Concomitant]
     Active Substance: LEVOTHYROXINE SODIUM
     Indication: HYPOTHYROIDISM
     Dosage: DAILY
     Route: 048

REACTIONS (3)
  - Loss of consciousness [Recovered/Resolved]
  - Off label use [Recovered/Resolved]
  - Headache [Recovered/Resolved]

NARRATIVE: CASE EVENT DATE: 201604
